FAERS Safety Report 5026413-5 (Version None)
Quarter: 2006Q2

REPORT INFORMATION
  Report Type: 
  Country: None (occurrence: None)
  Receive Date: 20060612
  Receipt Date: 20060612
  Transmission Date: 20061013
  Serious: Yes (Life-Threatening, Other)
  Sender: FDA-Public Use
  Company Number: None

PATIENT
  Age: 57 Year
  Sex: Male
  Weight: 142.4295 kg

DRUGS (1)
  1. DEMADEX [Suspect]
     Indication: CARDIAC FAILURE CONGESTIVE
     Dosage: 10 MG 1.5 PILLS PER DAY PO
     Route: 048
     Dates: start: 19960401, end: 20060608

REACTIONS (2)
  - DRUG INEFFECTIVE [None]
  - PHARMACEUTICAL PRODUCT COMPLAINT [None]
